FAERS Safety Report 8481823-9 (Version None)
Quarter: 2012Q3

REPORT INFORMATION
  Report Type: 
  Country: None (occurrence: None)
  Receive Date: 20120702
  Receipt Date: 20120626
  Transmission Date: 20120928
  Serious: No
  Sender: FDA-Public Use
  Company Number: US-PFIZER INC-2012156898

PATIENT
  Sex: Female
  Weight: 104 kg

DRUGS (4)
  1. PRISTIQ [Suspect]
     Indication: POST-TRAUMATIC STRESS DISORDER
     Dosage: 50 MG, 1X/DAY
     Dates: start: 20120101, end: 20120601
  2. PRISTIQ [Suspect]
     Indication: ANXIETY
  3. THYROID [Concomitant]
     Indication: THYROID DISORDER
     Dosage: 2 UG, 1X/DAY
  4. PRISTIQ [Suspect]
     Indication: DEPRESSION

REACTIONS (4)
  - URTICARIA [None]
  - CRYING [None]
  - DRUG INEFFECTIVE [None]
  - MENTAL DISORDER [None]
